FAERS Safety Report 16784590 (Version 1)
Quarter: 2019Q3

REPORT INFORMATION
  Report Type: Report from Study
  Country: US (occurrence: US)
  Receive Date: 20190909
  Receipt Date: 20190909
  Transmission Date: 20191005
  Serious: Yes (Other)
  Sender: FDA-Public Use
  Company Number: US-ASTELLAS-2019US001600

PATIENT
  Age: 65 Year
  Sex: Male

DRUGS (3)
  1. ENZALUTAMIDE [Suspect]
     Active Substance: ENZALUTAMIDE
     Indication: METASTASES TO BONE
     Route: 048
     Dates: start: 20181007
  2. ENZALUTAMIDE [Suspect]
     Active Substance: ENZALUTAMIDE
     Indication: HORMONE-REFRACTORY PROSTATE CANCER
     Route: 048
     Dates: start: 20180908
  3. ENZALUTAMIDE [Suspect]
     Active Substance: ENZALUTAMIDE
     Route: 048
     Dates: start: 201812

REACTIONS (28)
  - Loss of consciousness [Unknown]
  - Temperature intolerance [Unknown]
  - Decreased appetite [Unknown]
  - Dyspnoea [Unknown]
  - Headache [Unknown]
  - Nausea [Not Recovered/Not Resolved]
  - Underdose [Unknown]
  - Back pain [Unknown]
  - Restless legs syndrome [Not Recovered/Not Resolved]
  - Stress urinary incontinence [Not Recovered/Not Resolved]
  - Flushing [Unknown]
  - Sleep talking [Unknown]
  - Arthralgia [Unknown]
  - Asthenia [Not Recovered/Not Resolved]
  - Dyspepsia [Unknown]
  - Attention deficit/hyperactivity disorder [Not Recovered/Not Resolved]
  - Depression [Unknown]
  - Malaise [Unknown]
  - Pain [Unknown]
  - Somnolence [Unknown]
  - Burning sensation [Unknown]
  - Diarrhoea [Unknown]
  - Hot flush [Unknown]
  - Fatigue [Unknown]
  - Hyperhidrosis [Not Recovered/Not Resolved]
  - Initial insomnia [Not Recovered/Not Resolved]
  - Muscular weakness [Unknown]
  - Arthritis [Unknown]

NARRATIVE: CASE EVENT DATE: 20180909
